FAERS Safety Report 18114483 (Version 3)
Quarter: 2021Q3

REPORT INFORMATION
  Report Type: Spontaneous
  Country: US (occurrence: US)
  Receive Date: 20200805
  Receipt Date: 20210705
  Transmission Date: 20211014
  Serious: Yes (Other)
  Sender: FDA-Public Use
  Company Number: US-GLAXOSMITHKLINE-US2020151060

PATIENT
  Sex: Male

DRUGS (9)
  1. RANITIDINE. [Suspect]
     Active Substance: RANITIDINE
     Indication: GASTRIC DISORDER
     Dosage: 150 MG, QD
     Route: 065
     Dates: start: 199701, end: 201601
  2. RANITIDINE. [Suspect]
     Active Substance: RANITIDINE
     Indication: GASTRIC DISORDER
     Dosage: 150 MG, QD
     Route: 065
     Dates: start: 199701, end: 201601
  3. ZANTAC [Suspect]
     Active Substance: RANITIDINE HYDROCHLORIDE
     Dosage: UNK
     Route: 065
  4. ZANTAC [Suspect]
     Active Substance: RANITIDINE HYDROCHLORIDE
     Indication: GASTRIC DISORDER
     Dosage: 75 MG, QD
     Route: 065
     Dates: start: 198801, end: 201601
  5. ZANTAC [Suspect]
     Active Substance: RANITIDINE HYDROCHLORIDE
     Indication: GASTRIC DISORDER
     Dosage: 75 MG, QD
     Route: 065
     Dates: start: 198801, end: 201601
  6. RANITIDINE. [Suspect]
     Active Substance: RANITIDINE
     Dosage: UNK
     Route: 065
  7. ZANTAC [Suspect]
     Active Substance: RANITIDINE HYDROCHLORIDE
     Dosage: 150 MG, QD
     Route: 065
     Dates: start: 198801, end: 201601
  8. ZANTAC [Suspect]
     Active Substance: RANITIDINE HYDROCHLORIDE
     Dosage: 150 MG, QD
     Route: 065
     Dates: start: 198801, end: 201601
  9. RANITIDINE HCI [Suspect]
     Active Substance: RANITIDINE HYDROCHLORIDE
     Dosage: UNK
     Route: 065

REACTIONS (2)
  - Colorectal cancer [Unknown]
  - Hepatic cancer [Unknown]
